FAERS Safety Report 21876059 (Version 1)
Quarter: 2023Q1

REPORT INFORMATION
  Report Type: Spontaneous
  Country: JP (occurrence: JP)
  Receive Date: 20230118
  Receipt Date: 20230118
  Transmission Date: 20230417
  Serious: Yes (Other)
  Sender: FDA-Public Use
  Company Number: JP-CELLTRION INC.-2023JP000575

PATIENT

DRUGS (3)
  1. BEVACIZUMAB [Suspect]
     Active Substance: BEVACIZUMAB
     Indication: Malignant ovarian cyst
  2. PACLITAXEL [Suspect]
     Active Substance: PACLITAXEL
     Indication: Malignant ovarian cyst
  3. CARBOPLATIN [Suspect]
     Active Substance: CARBOPLATIN
     Indication: Malignant ovarian cyst

REACTIONS (1)
  - Disease recurrence [Recovering/Resolving]
